FAERS Safety Report 6537964-6 (Version None)
Quarter: 2010Q1

REPORT INFORMATION
  Report Type: 
  Country: None (occurrence: None)
  Receive Date: 20100114
  Receipt Date: 20100105
  Transmission Date: 20100710
  Serious: Yes (Other)
  Sender: FDA-Public Use
  Company Number: FI-WYE-H12951010

PATIENT
  Sex: Male

DRUGS (6)
  1. SOMAC [Suspect]
     Indication: HYPERCHLORHYDRIA
     Dosage: 40 MG EVERY 1 TOT
     Route: 048
     Dates: start: 20091224, end: 20091224
  2. PRIMASPAN [Concomitant]
     Route: 048
     Dates: start: 20010101
  3. EMCONCOR [Concomitant]
     Route: 048
     Dates: start: 19870501
  4. SIMVASTATIN [Concomitant]
     Route: 048
     Dates: start: 19870501
  5. ALCOHOL [Concomitant]
     Dosage: 20 ML
     Dates: start: 20091224, end: 20091224
  6. PENTASA [Concomitant]
     Dosage: 6 DOSAGE FORMS (500 MG TABLETS)
     Route: 048
     Dates: start: 20040101

REACTIONS (6)
  - ARTHRALGIA [None]
  - DRY MOUTH [None]
  - DYSPNOEA [None]
  - FEELING HOT [None]
  - HEART RATE INCREASED [None]
  - HYPERSENSITIVITY [None]
